FAERS Safety Report 19635146 (Version 1)
Quarter: 2021Q3

REPORT INFORMATION
  Report Type: Spontaneous
  Country: HR (occurrence: HR)
  Receive Date: 20210730
  Receipt Date: 20210730
  Transmission Date: 20211014
  Serious: Yes (Other)
  Sender: FDA-Public Use
  Company Number: HR-TEVA-2021-HR-1937433

PATIENT
  Sex: Female

DRUGS (3)
  1. DULOXETINE. [Suspect]
     Active Substance: DULOXETINE
     Dosage: 360MG
     Route: 048
     Dates: start: 20210407, end: 20210407
  2. DIAZEPAM. [Suspect]
     Active Substance: DIAZEPAM
     Dosage: 80MG
     Route: 048
     Dates: start: 20210407, end: 20210407
  3. QUETIAPINUM [Suspect]
     Active Substance: QUETIAPINE
     Dosage: 1800MG
     Route: 048
     Dates: start: 20210407, end: 20210407

REACTIONS (3)
  - Intentional overdose [Unknown]
  - Suicide attempt [Unknown]
  - Somnolence [Unknown]

NARRATIVE: CASE EVENT DATE: 20210407
